FAERS Safety Report 11319829 (Version 1)
Quarter: 2015Q3

REPORT INFORMATION
  Report Type: Spontaneous
  Country: US (occurrence: None)
  Receive Date: 20150728
  Receipt Date: 20150728
  Transmission Date: 20151125
  Serious: Yes (Hospitalization)
  Sender: FDA-Public Use
  Company Number: None

PATIENT
  Age: 24 Year
  Sex: Female

DRUGS (14)
  1. CARVEDILOL. [Concomitant]
     Active Substance: CARVEDILOL
  2. FERROUS SULFATE [Concomitant]
     Active Substance: FERROUS SULFATE\FERROUS SULFATE, DRIED
  3. FOLIC ACID. [Concomitant]
     Active Substance: FOLIC ACID
  4. GLUCAGON. [Concomitant]
     Active Substance: GLUCAGON
  5. NAFCILLIN [Suspect]
     Active Substance: NAFCILLIN\NAFCILLIN SODIUM
     Indication: INFECTION
     Route: 042
     Dates: start: 20150227, end: 20150411
  6. ACETAMINOPHEN. [Concomitant]
     Active Substance: ACETAMINOPHEN
  7. WARFARIN [Suspect]
     Active Substance: WARFARIN
     Dosage: 5 MG TABLETS (2-3 TABLETS DAILY)  DAILY PO
     Route: 048
  8. FLUVOXAMINE [Concomitant]
     Active Substance: FLUVOXAMINE
  9. INSULIN GLARGINE [Concomitant]
     Active Substance: INSULIN GLARGINE
  10. ENALAPRIL [Concomitant]
     Active Substance: ENALAPRIL
  11. TOPIRAMATE. [Suspect]
     Active Substance: TOPIRAMATE
  12. MAGNESIUM OXIDE. [Concomitant]
     Active Substance: MAGNESIUM OXIDE
  13. INSULIN LISPRO [Concomitant]
     Active Substance: INSULIN LISPRO
  14. QUETIAPINE [Concomitant]
     Active Substance: QUETIAPINE

REACTIONS (3)
  - Migraine with aura [None]
  - International normalised ratio fluctuation [None]
  - Staphylococcal bacteraemia [None]

NARRATIVE: CASE EVENT DATE: 20150227
